FAERS Safety Report 23947737 (Version 6)
Quarter: 2024Q3

REPORT INFORMATION
  Report Type: Report from Study
  Country: CA (occurrence: CA)
  Receive Date: 20240606
  Receipt Date: 20240806
  Transmission Date: 20241016
  Serious: Yes (Hospitalization, Other)
  Sender: TAKEDA
  Company Number: CA-TAKEDA-2024TUS056718

PATIENT
  Sex: Female

DRUGS (3)
  1. VEDOLIZUMAB [Suspect]
     Active Substance: VEDOLIZUMAB
     Indication: Immunoglobulin therapy
     Dosage: 300 MILLIGRAM
     Route: 042
     Dates: start: 20230529
  2. VEDOLIZUMAB [Suspect]
     Active Substance: VEDOLIZUMAB
     Indication: Colitis
  3. PREDNISONE [Concomitant]
     Active Substance: PREDNISONE
     Dosage: UNK
     Dates: start: 20240522

REACTIONS (7)
  - Myocarditis [Unknown]
  - Diarrhoea haemorrhagic [Unknown]
  - Cardiac failure congestive [Unknown]
  - General physical health deterioration [Unknown]
  - Pain [Unknown]
  - Mobility decreased [Unknown]
  - Off label use [Unknown]
